FAERS Safety Report 26130493 (Version 1)
Quarter: 2025Q4

REPORT INFORMATION
  Report Type: Spontaneous
  Country: US (occurrence: US)
  Receive Date: 20251208
  Receipt Date: 20251208
  Transmission Date: 20260117
  Serious: No
  Sender: MERCK SHARP & DOHME LLC
  Company Number: US-009507513-2350132

PATIENT

DRUGS (1)
  1. VORINOSTAT [Suspect]
     Active Substance: VORINOSTAT
     Indication: Cutaneous T-cell lymphoma stage II
     Route: 048

REACTIONS (1)
  - Product administered to patient of inappropriate age [Unknown]
